FAERS Safety Report 16531703 (Version 2)
Quarter: 2019Q3

REPORT INFORMATION
  Report Type: Spontaneous
  Country: GB (occurrence: GB)
  Receive Date: 20190704
  Receipt Date: 20190718
  Transmission Date: 20191004
  Serious: Yes (Death, Hospitalization, Other)
  Sender: FDA-Public Use
  Company Number: GB-AUROBINDO-AUR-APL-2019-037280

PATIENT

DRUGS (3)
  1. DENOSUMAB [Suspect]
     Active Substance: DENOSUMAB
     Indication: PRODUCT USED FOR UNKNOWN INDICATION
     Dosage: UNK 6 MONTHLY
     Route: 065
  2. RIVAROXABAN [Suspect]
     Active Substance: RIVAROXABAN
     Indication: ATRIAL FIBRILLATION
     Dosage: 15 MILLIGRAM, ONCE A DAY
     Route: 065
  3. FLECAINIDE [Suspect]
     Active Substance: FLECAINIDE
     Indication: PRODUCT USED FOR UNKNOWN INDICATION
     Dosage: 50 MILLIGRAM, TWO TIMES A DAY
     Route: 065

REACTIONS (14)
  - C-reactive protein increased [Unknown]
  - Constipation [Unknown]
  - Acute kidney injury [Unknown]
  - Chest pain [Unknown]
  - Condition aggravated [Unknown]
  - Urine output decreased [Unknown]
  - General physical health deterioration [Unknown]
  - Vomiting [Unknown]
  - Nausea [Unknown]
  - Blood pressure increased [Unknown]
  - Cardiac arrest [Fatal]
  - Dehydration [Unknown]
  - Blood creatinine increased [Unknown]
  - Pericardial haemorrhage [Fatal]
